FAERS Safety Report 23921586 (Version 1)
Quarter: 2024Q2

REPORT INFORMATION
  Report Type: Report from Study
  Country: US (occurrence: US)
  Receive Date: 20240530
  Receipt Date: 20240530
  Transmission Date: 20240715
  Serious: No
  Sender: FDA-Public Use
  Company Number: US-AstraZeneca-CH-00632313A

PATIENT
  Sex: Female

DRUGS (1)
  1. ULTOMIRIS [Suspect]
     Active Substance: RAVULIZUMAB-CWVZ
     Indication: Product used for unknown indication
     Dosage: UNK
     Route: 065

REACTIONS (8)
  - Joint dislocation [Recovered/Resolved]
  - Muscular weakness [Unknown]
  - Corrective lens user [Unknown]
  - Bronchitis chronic [Unknown]
  - Swelling [Unknown]
  - Diarrhoea [Unknown]
  - Muscle spasms [Unknown]
  - Insomnia [Unknown]
